FAERS Safety Report 11385858 (Version 2)
Quarter: 2015Q3

REPORT INFORMATION
  Report Type: Spontaneous
  Country: BR (occurrence: BR)
  Receive Date: 20150817
  Receipt Date: 20150820
  Transmission Date: 20151125
  Serious: Yes (Other)
  Sender: FDA-Public Use
  Company Number: BR-009507513-1508BRA005215

PATIENT
  Age: 67 Year
  Sex: Female

DRUGS (1)
  1. COZAAR [Suspect]
     Active Substance: LOSARTAN POTASSIUM
     Indication: HYPERTENSION
     Dosage: 50 MG, QD
     Route: 048

REACTIONS (1)
  - Hypertensive crisis [Unknown]
